FAERS Safety Report 5135715-3 (Version None)
Quarter: 2006Q4

REPORT INFORMATION
  Report Type: 
  Country: None (occurrence: None)
  Receive Date: 20061024
  Receipt Date: 20061024
  Transmission Date: 20070319
  Serious: Yes (Hospitalization)
  Sender: FDA-Public Use
  Company Number: None

PATIENT
  Age: 53 Year
  Sex: Male

DRUGS (15)
  1. PANITUMUMAB [Suspect]
     Indication: SQUAMOUS CELL CARCINOMA
     Dosage: WEEKLY, IV, 2.5 MG/KG
     Route: 042
     Dates: start: 20060912, end: 20061010
  2. PANITUMUMAB [Suspect]
     Indication: TONSIL CANCER
     Dosage: WEEKLY, IV, 2.5 MG/KG
     Route: 042
     Dates: start: 20060912, end: 20061010
  3. ALKOLOL [Concomitant]
  4. KCL SOLUTION [Concomitant]
  5. MINOCIN [Concomitant]
  6. NYSTATIN [Concomitant]
  7. PRILOSEC [Concomitant]
  8. AMBIEN [Concomitant]
  9. REGLAN [Concomitant]
  10. ROBITUSSIN [Concomitant]
  11. ROXICET [Concomitant]
  12. ZOFRAN [Concomitant]
  13. ATIVAN [Concomitant]
  14. DURAGESIC-100 [Concomitant]
  15. HYDROCORTISONE [Concomitant]

REACTIONS (3)
  - FEBRILE NEUTROPENIA [None]
  - INFECTION [None]
  - MUCOSAL INFLAMMATION [None]
